FAERS Safety Report 4999854-X (Version None)
Quarter: 2006Q2

REPORT INFORMATION
  Report Type: 
  Country: None (occurrence: None)
  Receive Date: 20060510
  Receipt Date: 20060510
  Transmission Date: 20061013
  Serious: Yes (Hospitalization)
  Sender: FDA-Public Use
  Company Number: None

PATIENT
  Age: 65 Year
  Sex: Male

DRUGS (20)
  1. BUMEX [Suspect]
     Indication: CARDIAC FAILURE CONGESTIVE
     Dosage: 2.5 MG PO BID
     Route: 048
     Dates: start: 20060120, end: 20060210
  2. BUMEX [Suspect]
     Indication: HYPERTENSION
     Dosage: 2.5 MG PO BID
     Route: 048
     Dates: start: 20060120, end: 20060210
  3. METOLAZONE [Suspect]
     Indication: CARDIAC FAILURE CONGESTIVE
     Dosage: 2.5 MG PO QD
     Route: 048
     Dates: start: 20060120, end: 20060210
  4. METOLAZONE [Suspect]
     Indication: HYPERTENSION
     Dosage: 2.5 MG PO QD
     Route: 048
     Dates: start: 20060120, end: 20060210
  5. ZAROXOLYN [Concomitant]
  6. ALDACTONE [Concomitant]
  7. ASPIRIN [Concomitant]
  8. FOLIC ACID [Concomitant]
  9. LIPITOR [Concomitant]
  10. ACTOS [Concomitant]
  11. ALTACE [Concomitant]
  12. HUMULIN 70/30 [Concomitant]
  13. FLOMAX [Concomitant]
  14. TRAMADOL HCL [Concomitant]
  15. SINGULAIR [Concomitant]
  16. MECLIZINE [Concomitant]
  17. ISOSORBIDE MONONITRATE [Concomitant]
  18. HYDRALAZINE HCL [Concomitant]
  19. COLACE [Concomitant]
  20. COMBIVENT [Concomitant]

REACTIONS (7)
  - BLOOD PRESSURE DIASTOLIC DECREASED [None]
  - DEHYDRATION [None]
  - DIZZINESS [None]
  - FALL [None]
  - HEADACHE [None]
  - POLYURIA [None]
  - RENAL FAILURE ACUTE [None]
